FAERS Safety Report 6328047-9 (Version None)
Quarter: 2009Q3

REPORT INFORMATION
  Report Type: 
  Country: None (occurrence: None)
  Receive Date: 20090825
  Receipt Date: 20081030
  Transmission Date: 20100115
  Serious: No
  Sender: FDA-Public Use
  Company Number: US-ABBOTT-08P-163-0485342-00

PATIENT
  Age: 52 Year
  Sex: Female

DRUGS (2)
  1. SYNTHROID [Suspect]
     Indication: HYPOTHYROIDISM
     Route: 048
     Dates: start: 19980101
  2. SYNTHROID [Suspect]
     Route: 048

REACTIONS (4)
  - FEELING HOT [None]
  - HYPOTHYROIDISM [None]
  - PERIPHERAL COLDNESS [None]
  - THYROIDECTOMY [None]
